FAERS Safety Report 10113461 (Version 2)
Quarter: 2014Q4

REPORT INFORMATION
  Report Type: Spontaneous
  Country: US (occurrence: US)
  Receive Date: 20140425
  Receipt Date: 20141215
  Transmission Date: 20150528
  Serious: Yes (Hospitalization)
  Sender: FDA-Public Use
  Company Number: US-BAYER-2014-059699

PATIENT
  Age: 40 Year
  Sex: Female
  Weight: 63.95 kg

DRUGS (3)
  1. YASMIN [Suspect]
     Active Substance: DROSPIRENONE\ETHINYL ESTRADIOL
     Dosage: UNK
     Dates: start: 2004, end: 20071105
  2. YAZ [Suspect]
     Active Substance: DROSPIRENONE\ETHINYL ESTRADIOL
     Dosage: UNK
     Dates: end: 20071105
  3. HYDROCORTISONE. [Concomitant]
     Active Substance: HYDROCORTISONE
     Dosage: 25 MG, UNK
     Route: 048
     Dates: start: 20070907

REACTIONS (6)
  - Pain [None]
  - Pulmonary embolism [None]
  - Injury [None]
  - Anxiety [None]
  - Emotional distress [None]
  - General physical health deterioration [None]

NARRATIVE: CASE EVENT DATE: 20071105
